FAERS Safety Report 6157222-1 (Version None)
Quarter: 2009Q2

REPORT INFORMATION
  Report Type: 
  Country: None (occurrence: None)
  Receive Date: 20090413
  Receipt Date: 20090206
  Transmission Date: 20091009
  Serious: Yes (Hospitalization)
  Sender: FDA-Public Use
  Company Number: 232147

PATIENT
  Age: 51 Year
  Sex: Female

DRUGS (4)
  1. LEUCOVORIN CALCIUM [Suspect]
     Indication: COLORECTAL CANCER
     Dosage: 624 MG, 1 IN 2 WEEKS, INTRAVENOUS DRIP
     Route: 041
     Dates: start: 20080909, end: 20080927
  2. IRINOTECAN HCL [Suspect]
     Indication: COLORECTAL CANCER
     Dosage: 281 MG, 1 IN 2 WEEKS, INTRAVENOUS
     Route: 042
     Dates: start: 20080909, end: 20080923
  3. FLUOROURACIL [Suspect]
     Indication: COLORECTAL CANCER
     Dosage: 4368 MG, 1 IN 2 WEEKS, INTRAVENOUS DRIP
     Route: 041
     Dates: start: 20080909, end: 20080927
  4. (OTHER CHEMOTHERAPEUTICS) [Suspect]
     Indication: COLORECTAL CANCER
     Dosage: 14 MG, 7 MG, TWICE DAILY, ORAL
     Route: 048
     Dates: start: 20080909, end: 20081015

REACTIONS (3)
  - ASTHENIA [None]
  - HAEMATOTOXICITY [None]
  - MIDDLE EAR INFLAMMATION [None]
